FAERS Safety Report 8008540-3 (Version None)
Quarter: 2011Q4

REPORT INFORMATION
  Report Type: 
  Country: None (occurrence: None)
  Receive Date: 20111222
  Receipt Date: 20111222
  Transmission Date: 20120403
  Serious: Yes (Other)
  Sender: FDA-Public Use
  Company Number: None

PATIENT

DRUGS (1)
  1. CHORIONIC GONADOTROPIN [Suspect]

REACTIONS (2)
  - LEGAL PROBLEM [None]
  - DRUG DIVERSION [None]
